FAERS Safety Report 14342853 (Version 1)
Quarter: 2018Q1

REPORT INFORMATION
  Report Type: Spontaneous
  Country: US (occurrence: US)
  Receive Date: 20180102
  Receipt Date: 20180102
  Transmission Date: 20180509
  Serious: Yes (Other)
  Sender: FDA-Public Use
  Company Number: US-ABBVIE-17K-163-2206603-00

PATIENT
  Sex: Male

DRUGS (2)
  1. ANDROGEL [Suspect]
     Active Substance: TESTOSTERONE
     Indication: HYPOGONADISM
     Dosage: 4 PUMPS DAILY
     Route: 061
     Dates: start: 200503, end: 201711
  2. ANDROGEL [Suspect]
     Active Substance: TESTOSTERONE
     Dosage: 3 PUMPS DAILY
     Route: 061
     Dates: start: 20171223

REACTIONS (6)
  - Red blood cell count decreased [Not Recovered/Not Resolved]
  - Product administered at inappropriate site [Recovered/Resolved]
  - White blood cell count decreased [Not Recovered/Not Resolved]
  - Memory impairment [Not Recovered/Not Resolved]
  - Blood testosterone decreased [Not Recovered/Not Resolved]
  - Myelodysplastic syndrome [Not Recovered/Not Resolved]

NARRATIVE: CASE EVENT DATE: 2005
